FAERS Safety Report 7206541-6 (Version None)
Quarter: 2010Q4

REPORT INFORMATION
  Report Type: 
  Country: None (occurrence: None)
  Receive Date: 20101229
  Receipt Date: 20101229
  Transmission Date: 20110411
  Serious: Yes (Other)
  Sender: FDA-Public Use
  Company Number: None

PATIENT
  Age: 51 Year
  Sex: Female
  Weight: 98 kg

DRUGS (1)
  1. METRONIDAZOLE [Suspect]
     Dosage: 500MG Q8H IV BOLUS
     Route: 040
     Dates: start: 20101227, end: 20101227

REACTIONS (3)
  - HYPOAESTHESIA FACIAL [None]
  - LIP SWELLING [None]
  - LYMPHATIC DISORDER [None]
